FAERS Safety Report 23770723 (Version 3)
Quarter: 2024Q3

REPORT INFORMATION
  Report Type: Spontaneous
  Country: JP (occurrence: JP)
  Receive Date: 20240422
  Receipt Date: 20240729
  Transmission Date: 20241016
  Serious: Yes (Other)
  Sender: NOVARTIS
  Company Number: JP-002147023-NVSJ2024JP004923

PATIENT
  Age: 67 Year
  Sex: Male

DRUGS (10)
  1. BEOVU [Suspect]
     Active Substance: BROLUCIZUMAB-DBLL
     Indication: Diabetic retinal oedema
     Dosage: 6 MG, 5 TO 6 TIMES,LEFT EYE
     Route: 031
     Dates: start: 20230424, end: 20240318
  2. DIAMOX SEQUELS [Suspect]
     Active Substance: ACETAZOLAMIDE
     Indication: Keratic precipitates
     Dosage: UNK
     Route: 065
     Dates: start: 20240427, end: 20240502
  3. DIAMOX SEQUELS [Suspect]
     Active Substance: ACETAZOLAMIDE
     Indication: Intraocular pressure increased
  4. POTASSIUM ASPARTATE [Suspect]
     Active Substance: POTASSIUM ASPARTATE
     Indication: Keratic precipitates
     Dosage: 2 DOSAGE FORM, BID
     Route: 048
     Dates: start: 20240427, end: 20240429
  5. POTASSIUM ASPARTATE [Suspect]
     Active Substance: POTASSIUM ASPARTATE
     Dosage: 1 DOSAGE FORM, QD
     Route: 048
     Dates: start: 20240430, end: 20240502
  6. RINDERON A [Suspect]
     Active Substance: BETAMETHASONE SODIUM PHOSPHATE\NEOMYCIN SULFATE
     Indication: Vitreous opacities
     Dosage: UNK UNK, QID
     Route: 065
     Dates: start: 20240328, end: 20240415
  7. RINDERON A [Suspect]
     Active Substance: BETAMETHASONE SODIUM PHOSPHATE\NEOMYCIN SULFATE
     Indication: Anterior chamber cell
     Dosage: UNK UNK, QID
     Route: 065
     Dates: start: 20240427, end: 20240501
  8. RINDERON A [Suspect]
     Active Substance: BETAMETHASONE SODIUM PHOSPHATE\NEOMYCIN SULFATE
     Indication: Keratic precipitates
     Dosage: UNK, BID
     Route: 065
     Dates: start: 20240502
  9. RINDERON A [Suspect]
     Active Substance: BETAMETHASONE SODIUM PHOSPHATE\NEOMYCIN SULFATE
     Indication: Intraocular pressure increased
  10. TRIAMCINOLONE ACETONIDE [Concomitant]
     Active Substance: TRIAMCINOLONE ACETONIDE
     Indication: Product used for unknown indication
     Dosage: UNK
     Route: 047

REACTIONS (5)
  - Vitreous opacities [Recovering/Resolving]
  - Keratic precipitates [Recovered/Resolved]
  - Anterior chamber cell [Recovered/Resolved]
  - Malaise [Recovered/Resolved]
  - Intraocular pressure increased [Recovered/Resolved]

NARRATIVE: CASE EVENT DATE: 20240327
